FAERS Safety Report 6918869-5 (Version None)
Quarter: 2010Q3

REPORT INFORMATION
  Report Type: 
  Country: None (occurrence: None)
  Receive Date: 20100811
  Receipt Date: 20100802
  Transmission Date: 20110219
  Serious: Yes (Hospitalization, Other)
  Sender: FDA-Public Use
  Company Number: US-BAYER-201018674BCC

PATIENT
  Age: 56 Year
  Sex: Female
  Weight: 66 kg

DRUGS (7)
  1. PHILLIPS' NON-CONCENTRATED LIQUID WILD CHERRY [Suspect]
     Indication: CONSTIPATION
     Dosage: CONSUMER TOOK 4 TABLESPOONS. BOTTLE COUNT 12OZ
     Route: 048
     Dates: start: 20070101
  2. PHILLIPS' NON-CONCENTRATED LIQUID WILD CHERRY [Suspect]
     Dosage: CONSUMER TOOK 4 TABLESPOONS. BOTTLE COUNT 12OZ
     Route: 048
  3. PHILLIPS' NON-CONCENTRATED LIQUID WILD CHERRY [Suspect]
     Route: 048
  4. PHILLIPS' CONCENTRATED LIQUID FRESH STRAWBERRY [Suspect]
     Indication: CONSTIPATION
     Route: 048
  5. PHILLIPS' CONCENTRATED LIQUID FRESH STRAWBERRY [Suspect]
     Dosage: CONSUMER TOOK 6 TEASPOONS. BOTTLE COUNT 8 OZ
     Route: 048
  6. PHILLIPS' CONCENTRATED LIQUID FRESH STRAWBERRY [Suspect]
     Dosage: CONSUMER TOOK 6 TEASPOONS. BOTTLE COUNT 8 OZ
     Route: 048
     Dates: start: 20070101
  7. INDERAL [Concomitant]
     Dosage: 80 TO 160 MG
     Route: 065
     Dates: start: 19850101

REACTIONS (7)
  - ABDOMINAL PAIN LOWER [None]
  - ABSCESS INTESTINAL [None]
  - DIVERTICULITIS [None]
  - GASTROINTESTINAL PAIN [None]
  - MUSCLE STRAIN [None]
  - PALPITATIONS [None]
  - PYREXIA [None]
